FAERS Safety Report 5961995-8 (Version None)
Quarter: 2008Q4

REPORT INFORMATION
  Report Type: 
  Country: None (occurrence: None)
  Receive Date: 20081121
  Receipt Date: 20081110
  Transmission Date: 20090506
  Serious: Yes (Death)
  Sender: FDA-Public Use
  Company Number: TW-ROCHE-596262

PATIENT

DRUGS (3)
  1. PEG-INTERFERON ALFA 2A (RO 25-8310) [Suspect]
     Indication: HEPATITIS C
     Route: 058
  2. RIBAVIRIN [Suspect]
     Indication: HEPATITIS C
     Dosage: 1000 MG DAILY { 75 KG OR 1200 MG DAILY } 75 KG BODY WEIGHT.
     Route: 048
  3. RIBAVIRIN [Suspect]
     Route: 048

REACTIONS (2)
  - PULMONARY TUBERCULOSIS [None]
  - RESPIRATORY FAILURE [None]
